FAERS Safety Report 7224131-6 (Version None)
Quarter: 2011Q1

REPORT INFORMATION
  Report Type: 
  Country: None (occurrence: None)
  Receive Date: 20110113
  Receipt Date: 20110104
  Transmission Date: 20110831
  Serious: No
  Sender: FDA-Public Use
  Company Number: US-BIOGENIDEC-2011BI000562

PATIENT
  Age: 62 Year
  Sex: Male

DRUGS (2)
  1. PENTASA [Concomitant]
     Indication: CROHN'S DISEASE
     Route: 048
     Dates: start: 20020101
  2. AVONEX [Suspect]
     Indication: MULTIPLE SCLEROSIS
     Route: 030
     Dates: start: 20101217, end: 20101224

REACTIONS (17)
  - PHARYNGITIS [None]
  - WHITE BLOOD CELL COUNT INCREASED [None]
  - TONGUE COATED [None]
  - DIZZINESS [None]
  - PALPITATIONS [None]
  - PLATELET COUNT DECREASED [None]
  - INFLUENZA [None]
  - INFLUENZA LIKE ILLNESS [None]
  - INJECTION SITE ERYTHEMA [None]
  - INJECTION SITE PAIN [None]
  - FATIGUE [None]
  - ARTHRALGIA [None]
  - NERVOUSNESS [None]
  - PHARYNGEAL ERYTHEMA [None]
  - BODY TEMPERATURE INCREASED [None]
  - MUSCLE SPASTICITY [None]
  - MOBILITY DECREASED [None]
